FAERS Safety Report 8833641 (Version 2)
Quarter: 2012Q4

REPORT INFORMATION
  Report Type: Report from Study
  Country: AT (occurrence: AT)
  Receive Date: 20121010
  Receipt Date: 20121031
  Transmission Date: 20130627
  Serious: Yes (Hospitalization)
  Sender: FDA-Public Use
  Company Number: AT-ROCHE-1143339

PATIENT
  Age: 67 Year
  Sex: Male
  Weight: 69 kg

DRUGS (23)
  1. BEVACIZUMAB [Suspect]
     Indication: COLON CANCER METASTATIC
     Dosage: drug interrupted
     Route: 042
     Dates: start: 20120719
  2. BEVACIZUMAB [Suspect]
     Dosage: drug restarted
     Route: 042
     Dates: start: 20120912
  3. OXALIPLATIN [Suspect]
     Indication: COLON CANCER METASTATIC
     Dosage: drug interrupted
     Route: 042
     Dates: start: 20120719
  4. OXALIPLATIN [Suspect]
     Dosage: drug restarted
     Route: 042
     Dates: start: 20120912
  5. LEUCOVORIN CALCIUM [Suspect]
     Indication: COLON CANCER METASTATIC
     Dosage: drug interrupted
     Route: 042
     Dates: start: 20120719
  6. LEUCOVORIN CALCIUM [Suspect]
     Dosage: drug restarted
     Route: 042
     Dates: start: 20120912
  7. FLUOROURACIL [Suspect]
     Indication: COLON CANCER METASTATIC
     Dosage: IV bolus; drug interrupted
     Route: 042
     Dates: start: 20120719
  8. FLUOROURACIL [Suspect]
     Dosage: drug restarted
     Route: 042
     Dates: start: 20120912
  9. FLUOROURACIL [Suspect]
     Indication: COLON CANCER METASTATIC
     Dosage: IV drip; drug interrupted
     Route: 042
     Dates: start: 20120719
  10. FLUOROURACIL [Suspect]
     Dosage: drug restarted
     Route: 042
     Dates: start: 20120912
  11. DOMPERIDONE [Concomitant]
  12. ZOFRAN ZYDIS [Concomitant]
  13. MAGNESIUM VERLA N [Concomitant]
  14. FRAGMIN [Concomitant]
  15. DIPHENHYDRAMINE HCL [Concomitant]
  16. PANTOPRAZOL [Concomitant]
  17. INDAPAMID [Concomitant]
  18. NOVALGIN [Concomitant]
  19. KALIORAL [Concomitant]
  20. NEULASTA [Concomitant]
  21. MUCOBENE [Concomitant]
  22. MUCOSOLVAN [Concomitant]
  23. DEXAMETHASONE [Concomitant]

REACTIONS (1)
  - Renal failure [Recovered/Resolved]
